FAERS Safety Report 25016288 (Version 1)
Quarter: 2025Q1

REPORT INFORMATION
  Report Type: Spontaneous
  Country: NZ (occurrence: NZ)
  Receive Date: 20250227
  Receipt Date: 20250227
  Transmission Date: 20250409
  Serious: Yes (Life-Threatening)
  Sender: AMGEN
  Company Number: NZ-AMGEN-NZLSP2025035004

PATIENT
  Age: 64 Year
  Sex: Male

DRUGS (7)
  1. CINACALCET HYDROCHLORIDE [Suspect]
     Active Substance: CINACALCET HYDROCHLORIDE
     Indication: Product used for unknown indication
     Dosage: 30 MILLIGRAM, QD
     Route: 048
  2. ERYTHROPOIETIN [Concomitant]
     Active Substance: ERYTHROPOIETIN
     Route: 065
  3. BUMETANIDE [Concomitant]
     Active Substance: BUMETANIDE
  4. FELODIPINE [Concomitant]
     Active Substance: FELODIPINE
  5. DOXAZOSIN [Concomitant]
     Active Substance: DOXAZOSIN MESYLATE
  6. CLONIDINE [Concomitant]
     Active Substance: CLONIDINE
  7. CALCITRIOL [Concomitant]
     Active Substance: CALCITRIOL
     Route: 065

REACTIONS (2)
  - Torsade de pointes [Recovering/Resolving]
  - Aortic valve calcification [Unknown]
